FAERS Safety Report 13626263 (Version 1)
Quarter: 2017Q2

REPORT INFORMATION
  Report Type: Spontaneous
  Country: US (occurrence: US)
  Receive Date: 20170531
  Receipt Date: 20170531
  Transmission Date: 20170830
  Serious: Yes (Other)
  Sender: FDA-Public Use
  Company Number: US-ASTELLAS-1324747

PATIENT
  Age: 75 Year
  Sex: Male

DRUGS (7)
  1. LANSOPRAZOLE. [Concomitant]
     Active Substance: LANSOPRAZOLE
     Route: 065
     Dates: start: 20131216
  2. WARFARIN [Concomitant]
     Active Substance: WARFARIN
     Route: 065
     Dates: start: 20130628
  3. NADOLOL. [Concomitant]
     Active Substance: NADOLOL
     Route: 065
     Dates: start: 20131219
  4. TAMSULOSIN [Concomitant]
     Active Substance: TAMSULOSIN
     Route: 065
     Dates: start: 20130802
  5. TARCEVA [Suspect]
     Active Substance: ERLOTINIB HYDROCHLORIDE
     Indication: LUNG NEOPLASM MALIGNANT
     Route: 048
     Dates: start: 20130822, end: 20131205
  6. FLOMAX [Concomitant]
     Active Substance: TAMSULOSIN HYDROCHLORIDE
     Route: 065
     Dates: start: 20130819
  7. KEPPRA [Concomitant]
     Active Substance: LEVETIRACETAM
     Route: 065

REACTIONS (1)
  - Drug effect decreased [Unknown]

NARRATIVE: CASE EVENT DATE: 20131220
